FAERS Safety Report 25720754 (Version 1)
Quarter: 2025Q3

REPORT INFORMATION
  Report Type: Spontaneous
  Country: US (occurrence: US)
  Receive Date: 20250825
  Receipt Date: 20250825
  Transmission Date: 20251020
  Serious: Yes (Hospitalization, Other)
  Sender: AMNEAL
  Company Number: US-AMNEAL PHARMACEUTICALS-2025-AMRX-03218

PATIENT
  Sex: Female
  Weight: 36.735 kg

DRUGS (1)
  1. CREXONT [Suspect]
     Active Substance: CARBIDOPA\LEVODOPA
     Indication: Parkinson^s disease
     Dosage: 01 CAPSULES (70/280MG), 4X/DAY
     Route: 048

REACTIONS (3)
  - Parkinson^s disease [Unknown]
  - Panic attack [Recovering/Resolving]
  - Anxiety [Recovering/Resolving]
